FAERS Safety Report 4591328-3 (Version None)
Quarter: 2005Q1

REPORT INFORMATION
  Report Type: 
  Country: None (occurrence: None)
  Receive Date: 20050222
  Receipt Date: 20050208
  Transmission Date: 20050727
  Serious: Yes (Other)
  Sender: FDA-Public Use
  Company Number: 2247

PATIENT
  Sex: Female

DRUGS (1)
  1. PROPOXYPHENE CAPSULES, 65 MG MFR.: WEST-WARD [Suspect]
     Dosage: 65MG

REACTIONS (4)
  - DIZZINESS [None]
  - PALPITATIONS [None]
  - PHARMACEUTICAL PRODUCT COMPLAINT [None]
  - TREMOR [None]
